FAERS Safety Report 13832619 (Version 1)
Quarter: 2017Q3

REPORT INFORMATION
  Report Type: Spontaneous
  Country: US (occurrence: US)
  Receive Date: 20170803
  Receipt Date: 20170803
  Transmission Date: 20171127
  Serious: No
  Sender: FDA-Public Use
  Company Number: None

PATIENT
  Age: 23 Year
  Sex: Female
  Weight: 107.5 kg

DRUGS (5)
  1. DEXTROAMPHET SACCHARAT, AMPHET ASPARTATE, DEXTROAMPHET SULFATE AND AMPHET SULFAT [Suspect]
     Active Substance: AMPHETAMINE ASPARTATE\AMPHETAMINE SULFATE\DEXTROAMPHETAMINE SACCHARATE\DEXTROAMPHETAMINE SULFATE
     Indication: ATTENTION DEFICIT/HYPERACTIVITY DISORDER
     Dosage: ?          QUANTITY:2 TABLET(S);?
     Route: 048
     Dates: start: 20170731, end: 20170801
  2. COPPER IUD [Concomitant]
     Active Substance: COPPER
  3. NEURONTIN [Concomitant]
     Active Substance: GABAPENTIN
  4. ADDERALL [Concomitant]
     Active Substance: AMPHETAMINE ASPARTATE\AMPHETAMINE SULFATE\DEXTROAMPHETAMINE SACCHARATE\DEXTROAMPHETAMINE SULFATE
  5. KLONIPIN [Concomitant]
     Active Substance: CLONAZEPAM

REACTIONS (4)
  - Product substitution issue [None]
  - Product quality issue [None]
  - Drug ineffective [None]
  - Headache [None]

NARRATIVE: CASE EVENT DATE: 20170803
